FAERS Safety Report 10023565 (Version 3)
Quarter: 2014Q3

REPORT INFORMATION
  Report Type: Spontaneous
  Country: DE (occurrence: DE)
  Receive Date: 20140320
  Receipt Date: 20140821
  Transmission Date: 20150326
  Serious: Yes (Other)
  Sender: FDA-Public Use
  Company Number: DE-ROCHE-1344788

PATIENT
  Age: 53 Year
  Sex: Female
  Weight: 50 kg

DRUGS (16)
  1. DOCETAXEL [Concomitant]
     Active Substance: DOCETAXEL
     Indication: BREAST CANCER METASTATIC
     Route: 065
     Dates: start: 20130425, end: 20131010
  2. IBUPROFEN. [Concomitant]
     Active Substance: IBUPROFEN
     Indication: PAIN
     Route: 048
     Dates: start: 20130417, end: 20131010
  3. BONDRONAT [Suspect]
     Active Substance: IBANDRONIC ACID
     Indication: PRODUCT USED FOR UNKNOWN INDICATION
     Route: 065
  4. BUPRENORPHINE HCL [Concomitant]
     Active Substance: BUPRENORPHINE HYDROCHLORIDE
     Route: 065
     Dates: start: 201311
  5. PERJETA [Suspect]
     Active Substance: PERTUZUMAB
     Indication: BREAST CANCER METASTATIC
     Dosage: LOADING DOSE
     Route: 042
     Dates: start: 20130425, end: 20130425
  6. BUPRENORPHINE HCL [Concomitant]
     Active Substance: BUPRENORPHINE HYDROCHLORIDE
     Dosage: 105 MCG/H, HIGHER TITRATION THAN BEFORE
     Route: 065
     Dates: start: 20140128
  7. NOVALGIN [Concomitant]
     Active Substance: METAMIZOLE SODIUM
     Indication: PAIN
  8. TRAMADOL [Concomitant]
     Active Substance: TRAMADOL
     Indication: PAIN
  9. HERCEPTIN [Suspect]
     Active Substance: TRASTUZUMAB
     Indication: BREAST CANCER METASTATIC
     Route: 042
     Dates: start: 20130425
  10. CORTISONE [Concomitant]
     Active Substance: CORTISONE\HYDROCORTISONE
  11. PERJETA [Suspect]
     Active Substance: PERTUZUMAB
     Dosage: MAINTENANCE DOSES
     Route: 042
     Dates: end: 20140213
  12. ESIDRIX [Concomitant]
     Active Substance: HYDROCHLOROTHIAZIDE
     Indication: OEDEMA
     Dosage: 1DF
     Route: 048
     Dates: start: 20130425
  13. OMEPRAZOL [Concomitant]
     Active Substance: OMEPRAZOLE
     Indication: PROPHYLAXIS AGAINST GASTROINTESTINAL ULCER
     Route: 048
     Dates: start: 20130417
  14. ARIMIDEX [Concomitant]
     Active Substance: ANASTROZOLE
     Route: 065
     Dates: start: 20140306
  15. CODEIN [Concomitant]
     Active Substance: CODEINE
     Indication: PAIN
     Dosage: DROPS
     Route: 065
  16. FENISTIL (GERMANY) [Concomitant]

REACTIONS (4)
  - Cardiac failure [Not Recovered/Not Resolved]
  - Pulmonary embolism [Unknown]
  - Sinus tachycardia [Unknown]
  - Hypersensitivity [Unknown]

NARRATIVE: CASE EVENT DATE: 20130701
